FAERS Safety Report 7097058-0 (Version None)
Quarter: 2010Q4

REPORT INFORMATION
  Report Type: 
  Country: None (occurrence: None)
  Receive Date: 20101028
  Receipt Date: 20101019
  Transmission Date: 20110411
  Serious: Yes (Hospitalization)
  Sender: FDA-Public Use
  Company Number: 20100805CINRY1572

PATIENT
  Age: 15 Year
  Sex: Female

DRUGS (2)
  1. CINRYZE [Suspect]
     Indication: HEREDITARY ANGIOEDEMA
     Dosage: (1000 UNIT),INTRAVENOUS
     Route: 042
     Dates: start: 20100802, end: 20100805
  2. NORETHINDRONE ACETATE (NORETHISTERONE ACETATE) (5 MG, TABLETS) [Concomitant]

REACTIONS (3)
  - ANGIOEDEMA [None]
  - CONDITION AGGRAVATED [None]
  - SUPRAVENTRICULAR TACHYCARDIA [None]
